FAERS Safety Report 13176474 (Version 1)
Quarter: 2017Q1

REPORT INFORMATION
  Report Type: Report from Study
  Country: US (occurrence: US)
  Receive Date: 20170201
  Receipt Date: 20170201
  Transmission Date: 20170428
  Serious: Yes (Other)
  Sender: FDA-Public Use
  Company Number: US-MYLANLABS-2017M1005741

PATIENT

DRUGS (3)
  1. FLUOROURACIL. [Suspect]
     Active Substance: FLUOROURACIL
     Indication: SQUAMOUS CELL CARCINOMA OF HEAD AND NECK
     Dosage: 1000MG/ME2/DAY, OVER DAYS 1-4, EVERY 3WEEKS
     Route: 050
  2. INVESTIGATIONAL ANTINEOPLASTIC DRUGS [Suspect]
     Active Substance: INVESTIGATIONAL PRODUCT
     Indication: SQUAMOUS CELL CARCINOMA OF HEAD AND NECK
     Dosage: 1650MG ON DAY 1, EVERY 3 WEEKS
     Route: 042
  3. CISPLATIN. [Suspect]
     Active Substance: CISPLATIN
     Indication: SQUAMOUS CELL CARCINOMA OF HEAD AND NECK
     Dosage: 100MG/ME2 ON DAY1, EVERY 3WEEKS
     Route: 042

REACTIONS (3)
  - Neutropenia [Unknown]
  - Diarrhoea [Recovered/Resolved]
  - Dehydration [Unknown]
